FAERS Safety Report 7771632-8 (Version None)
Quarter: 2011Q3

REPORT INFORMATION
  Report Type: 
  Country: None (occurrence: None)
  Receive Date: 20110922
  Receipt Date: 20100115
  Transmission Date: 20111222
  Serious: No
  Sender: FDA-Public Use
  Company Number: US-ASTRAZENECA-2009SE20060

PATIENT
  Age: 37 Year
  Sex: Female
  Weight: 94.3 kg

DRUGS (8)
  1. ZYPREXA/SYMBAX [Concomitant]
     Dates: start: 20050101
  2. LIPITOR [Concomitant]
     Dosage: QHS
     Route: 048
     Dates: start: 20080406
  3. SEROQUEL [Suspect]
     Indication: DEPRESSION
     Route: 048
     Dates: start: 20060101, end: 20080101
  4. SEROQUEL [Suspect]
     Indication: SLEEP DISORDER
     Route: 048
     Dates: start: 20060101, end: 20080101
  5. SEROQUEL [Suspect]
     Route: 048
     Dates: start: 20080401
  6. RISPERDAL [Concomitant]
     Dates: start: 20060101
  7. SEROQUEL [Suspect]
     Route: 048
     Dates: start: 20080401
  8. PROZAC [Concomitant]
     Route: 048
     Dates: start: 20080406

REACTIONS (4)
  - TYPE 2 DIABETES MELLITUS [None]
  - ARTHRITIS [None]
  - HYPERTENSION [None]
  - LOSS OF CONSCIOUSNESS [None]
